FAERS Safety Report 8060666 (Version 5)
Quarter: 2013Q3

REPORT INFORMATION
  Report Type: Spontaneous
  Country: JP (occurrence: JP)
  Receive Date: 20110729
  Receipt Date: 20130906
  Transmission Date: 20140515
  Serious: Yes (Other)
  Sender: FDA-Public Use
  Company Number: PHHY2011JP66470

PATIENT
  Age: 72 Year
  Sex: Male
  Weight: 56 kg

DRUGS (6)
  1. EVEROLIMUS [Suspect]
     Indication: METASTATIC RENAL CELL CARCINOMA
     Dosage: 5 MG, DAILY
     Route: 048
     Dates: start: 20110112, end: 20110606
  2. CALCIUM CARBONATE [Concomitant]
     Route: 048
     Dates: start: 20110112
  3. ZYLORIC [Concomitant]
     Route: 048
     Dates: start: 20110112
  4. RYTHMODAN [Concomitant]
     Dates: start: 20110112
  5. MAINTATE [Concomitant]
     Route: 048
     Dates: start: 20110112
  6. AZUNOL [Concomitant]
     Indication: PROPHYLAXIS
     Dates: start: 20110112

REACTIONS (4)
  - C-reactive protein increased [Recovering/Resolving]
  - Malaise [Unknown]
  - Decreased appetite [Unknown]
  - Interstitial lung disease [Unknown]
